FAERS Safety Report 8546305-4 (Version None)
Quarter: 2012Q3

REPORT INFORMATION
  Report Type: 
  Country: None (occurrence: None)
  Receive Date: 20120727
  Receipt Date: 20120411
  Transmission Date: 20120928
  Serious: No
  Sender: FDA-Public Use
  Company Number: US-ASTRAZENECA-2011SE75555

PATIENT
  Age: 35 Year
  Sex: Male
  Weight: 74.8 kg

DRUGS (5)
  1. CLONIDINE [Suspect]
     Route: 065
  2. SEROQUEL [Suspect]
     Route: 048
  3. SEROQUEL [Suspect]
     Route: 048
  4. SEROQUEL [Suspect]
     Indication: SLEEP DISORDER
     Route: 048
  5. SUBOXONE [Suspect]
     Route: 065

REACTIONS (10)
  - TACHYPHRENIA [None]
  - DENTAL CARIES [None]
  - FATIGUE [None]
  - INTENTIONAL DRUG MISUSE [None]
  - INSOMNIA [None]
  - TOOTHACHE [None]
  - TOOTH DISORDER [None]
  - SOMNOLENCE [None]
  - BIPOLAR DISORDER [None]
  - OFF LABEL USE [None]
